FAERS Safety Report 5871820-1 (Version None)
Quarter: 2008Q3

REPORT INFORMATION
  Report Type: 
  Country: None (occurrence: None)
  Receive Date: 20080905
  Receipt Date: 20080820
  Transmission Date: 20090109
  Serious: Yes (Other)
  Sender: FDA-Public Use
  Company Number: KR-BOEHRINGER INGELHEIM GMBH, GERMANY-2008-DE-05216BY

PATIENT
  Age: 76 Year
  Sex: Female

DRUGS (9)
  1. TELMISARTAN [Suspect]
     Indication: HYPERTENSION
     Route: 065
     Dates: start: 20070501
  2. PREDNISOLONE [Suspect]
     Indication: DRUG USE FOR UNKNOWN INDICATION
     Dosage: RT: 10-30 MG QD
     Route: 065
     Dates: start: 20050601, end: 20051001
  3. ANTIDIABETICS [Concomitant]
     Indication: DIABETES MELLITUS
     Route: 065
  4. DRUGS FOR HYPERLIPIDAEMIA [Concomitant]
     Indication: HYPERLIPIDAEMIA
     Route: 065
  5. CANDESARTAN [Concomitant]
     Indication: HYPERTENSION
     Route: 065
     Dates: start: 20050401
  6. TOPICAL STEROIDS [Concomitant]
     Indication: PEMPHIGUS
     Route: 065
  7. DRUGS FOR CARDIOVASCULAR DISEASES [Concomitant]
     Indication: CARDIOVASCULAR DISORDER
     Route: 065
  8. AZATHIOPRINE [Concomitant]
     Indication: PEMPHIGUS
     Route: 065
     Dates: start: 20050601, end: 20051001
  9. ANTIHISTAMINE [Concomitant]
     Indication: PEMPHIGUS
     Route: 065
     Dates: start: 20050601, end: 20051001

REACTIONS (1)
  - PEMPHIGUS [None]
